FAERS Safety Report 7515897-6 (Version None)
Quarter: 2011Q2

REPORT INFORMATION
  Report Type: 
  Country: None (occurrence: None)
  Receive Date: 20110601
  Receipt Date: 20110529
  Transmission Date: 20111010
  Serious: No
  Sender: FDA-Public Use
  Company Number: US-PFIZER INC-2011115616

PATIENT
  Age: 33 Year
  Sex: Male
  Weight: 76.19 kg

DRUGS (3)
  1. ADVIL LIQUI-GELS [Concomitant]
     Indication: ARTHRALGIA
     Dosage: UNK
     Route: 048
  2. VIAGRA [Suspect]
     Dosage: UNK
     Route: 048
     Dates: start: 20110529
  3. ADVIL LIQUI-GELS [Concomitant]
     Indication: PAIN

REACTIONS (2)
  - FEELING ABNORMAL [None]
  - PALPITATIONS [None]
